FAERS Safety Report 24771245 (Version 3)
Quarter: 2025Q1

REPORT INFORMATION
  Report Type: Report from Study
  Country: CA (occurrence: CA)
  Receive Date: 20241224
  Receipt Date: 20250228
  Transmission Date: 20250409
  Serious: Yes (Other)
  Sender: TAKEDA
  Company Number: CA-TAKEDA-2024TUS125080

PATIENT
  Sex: Female

DRUGS (3)
  1. VEDOLIZUMAB [Suspect]
     Active Substance: VEDOLIZUMAB
     Indication: Crohn^s disease
     Dates: start: 20241120, end: 20250108
  2. ARIPIPRAZOLE [Concomitant]
     Active Substance: ARIPIPRAZOLE
     Indication: Anxiety
  3. VENLAFAXINE [Concomitant]
     Active Substance: VENLAFAXINE HYDROCHLORIDE
     Indication: Anxiety

REACTIONS (8)
  - Haematochezia [Unknown]
  - Crohn^s disease [Not Recovered/Not Resolved]
  - Anal incontinence [Unknown]
  - Defaecation urgency [Unknown]
  - Loss of personal independence in daily activities [Unknown]
  - Diarrhoea [Unknown]
  - Drug ineffective [Not Recovered/Not Resolved]
  - Abdominal pain [Not Recovered/Not Resolved]
